FAERS Safety Report 8531491-2 (Version None)
Quarter: 2012Q3

REPORT INFORMATION
  Report Type: 
  Country: None (occurrence: None)
  Receive Date: 20120723
  Receipt Date: 20120713
  Transmission Date: 20120928
  Serious: Yes (Hospitalization, Other)
  Sender: FDA-Public Use
  Company Number: US-ACTELION-A-US2010-33368

PATIENT

DRUGS (4)
  1. SILDENAFIL [Concomitant]
  2. COUMADIN [Concomitant]
  3. TRACLEER [Suspect]
     Indication: PULMONARY ARTERIAL HYPERTENSION
     Dosage: UNK
     Route: 048
     Dates: start: 20090710
  4. ASPIRIN [Concomitant]

REACTIONS (5)
  - CARDIAC DISORDER [None]
  - INFECTION [None]
  - DEVICE RELATED INFECTION [None]
  - ARTIFICIAL HEART DEVICE USER [None]
  - DYSPNOEA [None]
